FAERS Safety Report 9412393 (Version 1)
Quarter: 2013Q3

REPORT INFORMATION
  Report Type: Spontaneous
  Country: PL (occurrence: PL)
  Receive Date: 20130722
  Receipt Date: 20130722
  Transmission Date: 20140515
  Serious: Yes (Hospitalization)
  Sender: FDA-Public Use
  Company Number: PL-TEVA-419721ISR

PATIENT
  Age: 36 Year
  Sex: Female
  Weight: 80 kg

DRUGS (2)
  1. HYDROXYZINE [Suspect]
  2. MYOLASTAN [Concomitant]

REACTIONS (2)
  - Shock haemorrhagic [Recovered/Resolved]
  - Hypotension [Recovered/Resolved]
